FAERS Safety Report 10657157 (Version 1)
Quarter: 2014Q4

REPORT INFORMATION
  Report Type: Spontaneous
  Country: DE (occurrence: DE)
  Receive Date: 20141217
  Receipt Date: 20141217
  Transmission Date: 20150529
  Serious: Yes (Other)
  Sender: FDA-Public Use
  Company Number: DE-TEVA-527225GER

PATIENT
  Age: 0 Year
  Sex: Female

DRUGS (1)
  1. CARBAMAZEPIN [Suspect]
     Active Substance: CARBAMAZEPINE
     Indication: EPILEPSY
     Dosage: 600 MILLIGRAM DAILY; DOSAGE 200-0-400MG/D
     Route: 064
     Dates: start: 20130706, end: 20140405

REACTIONS (2)
  - Gamma-glutamyltransferase increased [Recovering/Resolving]
  - Foetal exposure during pregnancy [Unknown]
